FAERS Safety Report 21409902 (Version 1)
Quarter: 2022Q4

REPORT INFORMATION
  Report Type: Spontaneous
  Country: US (occurrence: US)
  Receive Date: 20221005
  Receipt Date: 20221005
  Transmission Date: 20230113
  Serious: No
  Sender: FDA-Public Use
  Company Number: US-BAUSCH-BL-2022-009655

PATIENT
  Age: 66 Year
  Sex: Male

DRUGS (3)
  1. JUBLIA [Suspect]
     Active Substance: EFINACONAZOLE
     Indication: Product used for unknown indication
     Dosage: 8 ML BOTTLE JUBLIA
     Route: 061
  2. JUBLIA [Suspect]
     Active Substance: EFINACONAZOLE
     Dosage: 8 ML BOTTLE JUBLIA
     Route: 061
  3. JUBLIA [Suspect]
     Active Substance: EFINACONAZOLE
     Dosage: 8 ML BOTTLE JUBLIA
     Route: 061

REACTIONS (2)
  - Product delivery mechanism issue [Unknown]
  - Incorrect dose administered [Unknown]
